FAERS Safety Report 25973212 (Version 2)
Quarter: 2025Q4

REPORT INFORMATION
  Report Type: Spontaneous
  Country: EU (occurrence: EU)
  Receive Date: 20251029
  Receipt Date: 20251106
  Transmission Date: 20260117
  Serious: Yes (Other)
  Sender: ROCHE
  Company Number: EU-002147023-NVSC2025AT082109

PATIENT
  Age: 20 Year
  Sex: Male

DRUGS (2)
  1. XOLAIR [Suspect]
     Active Substance: OMALIZUMAB
     Indication: Chronic spontaneous urticaria
     Dosage: UNK, Q2W (DOUBLE DOSE, 14 DAYS)
     Route: 058
  2. XOLAIR [Suspect]
     Active Substance: OMALIZUMAB
     Indication: Angioedema
     Dosage: 300 MG, Q2MO
     Route: 065
     Dates: start: 20240830, end: 20250418

REACTIONS (2)
  - Suicidal ideation [Unknown]
  - Drug ineffective [Unknown]
